FAERS Safety Report 19702673 (Version 1)
Quarter: 2021Q3

REPORT INFORMATION
  Report Type: Spontaneous
  Country: JP (occurrence: JP)
  Receive Date: 20210815
  Receipt Date: 20210815
  Transmission Date: 20211014
  Serious: Yes (Other)
  Sender: FDA-Public Use
  Company Number: JP-JNJFOC-20210812135

PATIENT
  Age: 22 Day
  Sex: Female
  Weight: 3.39 kg

DRUGS (2)
  1. TRACLEER [Suspect]
     Active Substance: BOSENTAN
     Indication: NEWBORN PERSISTENT PULMONARY HYPERTENSION
     Dosage: BOSENTAN HYDRATE:32MG
     Route: 048
  2. SILDENAFIL. [Concomitant]
     Active Substance: SILDENAFIL
     Route: 048

REACTIONS (2)
  - Cardiomegaly [Unknown]
  - Pulmonary congestion [Unknown]
